FAERS Safety Report 22780355 (Version 2)
Quarter: 2024Q1

REPORT INFORMATION
  Report Type: Report from Study
  Country: BG (occurrence: BG)
  Receive Date: 20230803
  Receipt Date: 20240220
  Transmission Date: 20240409
  Serious: Yes (Death, Other)
  Sender: FDA-Public Use
  Company Number: BG-CELLTRION INC.-2023BG014980

PATIENT

DRUGS (16)
  1. HERCEPTIN [Suspect]
     Active Substance: TRASTUZUMAB
     Indication: HER2 positive breast cancer
     Dosage: 8 MG/KG EVERY 3 WEEKS
     Route: 042
     Dates: start: 20180613, end: 20190103
  2. HERCEPTIN [Suspect]
     Active Substance: TRASTUZUMAB
     Dosage: 8 MG/KG EVERY 3 WEEKS
     Route: 042
     Dates: start: 20190319, end: 20190412
  3. TRASTUZUMAB [Suspect]
     Active Substance: TRASTUZUMAB
     Indication: HER2 positive breast cancer
     Dosage: 8 MG/KG, EVERY 3 WEEKS (MOST RECENT DOSE PRIOR TO THE EVENT: 12/APR/2019)
     Route: 042
     Dates: start: 20180613, end: 20190103
  4. PERTUZUMAB [Suspect]
     Active Substance: PERTUZUMAB
     Indication: HER2 positive breast cancer
     Dosage: 840 MG, EVERY 3 WEEKS (MOST RECENT DOSE PRIOR TO THE EVENT: 12/APR/2019)
     Route: 042
     Dates: start: 20180614, end: 20180614
  5. DOCETAXEL [Suspect]
     Active Substance: DOCETAXEL\DOCETAXEL ANHYDROUS
     Indication: HER2 positive breast cancer
     Dosage: 75 MG/M2, EVERY 3 WEEKS (MOST RECENT DOSE PRIOR TO AE 24/NOV/2018)
     Route: 042
     Dates: start: 20180613
  6. VALTENSIN PLUS [Concomitant]
     Dosage: ONGOING = CHECKED
  7. DOXAZOSIN [Concomitant]
     Active Substance: DOXAZOSIN MESYLATE
     Indication: Pericarditis
     Dosage: ONGOING = CHECKED
     Dates: start: 20210920
  8. BISOR [BISOPROLOL FUMARATE] [Concomitant]
     Indication: Pericarditis
     Dosage: ONGOING = CHECKED
     Dates: start: 20210920
  9. ZOLOFT [Concomitant]
     Active Substance: SERTRALINE HYDROCHLORIDE
     Dosage: ONGOING = CHECKED
  10. TORSEMIDE [Concomitant]
     Active Substance: TORSEMIDE
     Dosage: ONGOING = CHECKED
     Dates: start: 20210703
  11. SPIRONOLACTONE [Concomitant]
     Active Substance: SPIRONOLACTONE
     Indication: Pericarditis
     Dosage: ONGOING = CHECKED
     Dates: start: 20210920
  12. ROSSTA [Concomitant]
     Indication: Pericarditis
     Dosage: ONGOING = CHECKED
     Dates: start: 20210920
  13. APIRI [Concomitant]
     Indication: Pericarditis
     Dosage: ONGOING = CHECKED
     Dates: start: 20210920
  14. PRETIMECTAL [Concomitant]
     Indication: Pericarditis
     Dosage: ONGOING = CHECKED
     Dates: start: 20210920
  15. LANZACID [Concomitant]
     Indication: Pericarditis
     Dosage: ONGOING = CHECKED
     Dates: start: 20210920
  16. FUROSEMIDE [Concomitant]
     Active Substance: FUROSEMIDE
     Indication: Pericarditis
     Dosage: ONGOING = CHECKED
     Dates: start: 20210920

REACTIONS (1)
  - Myocardial infarction [Fatal]

NARRATIVE: CASE EVENT DATE: 20230716
